FAERS Safety Report 21139145 (Version 1)
Quarter: 2022Q3

REPORT INFORMATION
  Report Type: Spontaneous
  Country: US (occurrence: US)
  Receive Date: 20220727
  Receipt Date: 20220727
  Transmission Date: 20221027
  Serious: Yes (Life-Threatening, Hospitalization)
  Sender: FDA-Public Use
  Company Number: US-MYLANLABS-2022M1081410

PATIENT
  Age: 23 Year
  Sex: Male

DRUGS (3)
  1. CLONAZEPAM [Suspect]
     Active Substance: CLONAZEPAM
     Indication: Product used for unknown indication
     Dosage: UNK
     Route: 065
  2. VALPROIC ACID [Suspect]
     Active Substance: VALPROIC ACID
     Indication: Post-anoxic myoclonus
     Dosage: UNK
     Route: 065
  3. LEVETIRACETAM [Suspect]
     Active Substance: LEVETIRACETAM
     Indication: Post-anoxic myoclonus
     Dosage: UNK
     Route: 065

REACTIONS (5)
  - Post-anoxic myoclonus [Recovering/Resolving]
  - Brain hypoxia [Unknown]
  - Drug ineffective for unapproved indication [Unknown]
  - Overdose [Recovering/Resolving]
  - Off label use [Unknown]
